FAERS Safety Report 8848334 (Version 1)
Quarter: 2012Q4

REPORT INFORMATION
  Report Type: 
  Country: US (occurrence: US)
  Receive Date: 20121019
  Receipt Date: 20121019
  Transmission Date: 20130627
  Serious: Yes (Other)
  Sender: FDA-Public Use
  Company Number: US-AMGEN-USASP2012065794

PATIENT
  Age: 75 Year
  Sex: Female

DRUGS (9)
  1. PROLIA [Suspect]
     Indication: OSTEOPOROSIS POSTMENOPAUSAL
     Dosage: UNK
     Dates: start: 201110
  2. CALCIUM [Concomitant]
  3. VITAMIN D                          /00318501/ [Concomitant]
     Dosage: 1000 IU, UNK
  4. SIMVASTATIN [Concomitant]
     Dosage: 20 mg, UNK
  5. ASPIRIN [Concomitant]
     Dosage: 81 mg, UNK
  6. ADVAIR [Concomitant]
     Dosage: 250/50 mg, UNK
  7. NIACIN [Concomitant]
     Dosage: 500 mg, UNK
  8. LISINOPRIL/HYDROCHLOROTHIAZIDE [Concomitant]
     Dosage: 20/12.5 mg, UNK
  9. VENTOLIN                           /00139501/ [Concomitant]
     Dosage: UNK UNK, prn

REACTIONS (1)
  - Parathyroid gland operation [Not Recovered/Not Resolved]
